FAERS Safety Report 25082010 (Version 2)
Quarter: 2025Q3

REPORT INFORMATION
  Report Type: Spontaneous
  Country: EU (occurrence: EU)
  Receive Date: 20250317
  Receipt Date: 20250802
  Transmission Date: 20251020
  Serious: Yes (Death, Other)
  Sender: ALEXION PHARMACEUTICALS
  Company Number: EU-ASTRAZENECA-202502EEA027734IT

PATIENT
  Sex: Female

DRUGS (4)
  1. DURVALUMAB [Suspect]
     Active Substance: DURVALUMAB
     Route: 065
  2. TREMELIMUMAB [Suspect]
     Active Substance: TREMELIMUMAB
     Route: 065
  3. CARBOPLATIN [Suspect]
     Active Substance: CARBOPLATIN
  4. GEMCITABINE [Suspect]
     Active Substance: GEMCITABINE

REACTIONS (6)
  - Death [Fatal]
  - Disease progression [Unknown]
  - Medication error [Unknown]
  - Pain [Unknown]
  - Weight decreased [Unknown]
  - Neoplasm recurrence [Unknown]
